FAERS Safety Report 18359385 (Version 1)
Quarter: 2020Q4

REPORT INFORMATION
  Report Type: Spontaneous
  Country: FR (occurrence: FR)
  Receive Date: 20201008
  Receipt Date: 20201008
  Transmission Date: 20210114
  Serious: Yes (Other)
  Sender: FDA-Public Use
  Company Number: FR-ALK-ABELLO A/S-2020AA003106

PATIENT

DRUGS (1)
  1. ACARIZAX [Suspect]
     Active Substance: DERMATOPHAGOIDES FARINAE\DERMATOPHAGOIDES PTERONYSSINUS
     Indication: MITE ALLERGY
     Dosage: UNK
     Route: 060
     Dates: start: 20191118, end: 20200304

REACTIONS (2)
  - Oesophageal food impaction [Recovered/Resolved]
  - Eosinophilic oesophagitis [Recovering/Resolving]

NARRATIVE: CASE EVENT DATE: 20200301
